FAERS Safety Report 15235051 (Version 1)
Quarter: 2018Q3

REPORT INFORMATION
  Report Type: Spontaneous
  Country: US (occurrence: US)
  Receive Date: 20180803
  Receipt Date: 20180803
  Transmission Date: 20181010
  Serious: Yes (Other)
  Sender: FDA-Public Use
  Company Number: US-APOTEX-2018AP018035

PATIENT
  Sex: Male

DRUGS (4)
  1. LEVETIRACETAM. [Suspect]
     Active Substance: LEVETIRACETAM
     Indication: EPILEPSY
     Dosage: 1000 MG, BID
     Route: 065
     Dates: start: 2009
  2. ATIVAN [Concomitant]
     Active Substance: LORAZEPAM
     Indication: PRODUCT USED FOR UNKNOWN INDICATION
     Dosage: 2 MG, QID AS PER NEEDED
     Route: 048
     Dates: start: 2005
  3. CLONIDINE. [Concomitant]
     Active Substance: CLONIDINE
     Indication: BLOOD PRESSURE MEASUREMENT
     Dosage: 0.1 MG, BID
     Route: 065
     Dates: start: 2006
  4. PROPANOLOL HYDROCHLORIDE [Concomitant]
     Active Substance: PROPRANOLOL HYDROCHLORIDE
     Indication: BLOOD PRESSURE MEASUREMENT
     Dosage: 20 MG, UNK, ONE TABLET IN THE MORNING AND TWO TABLETS IN THE EVENING
     Route: 065
     Dates: start: 2006

REACTIONS (8)
  - Mood altered [Not Recovered/Not Resolved]
  - Irritability [Not Recovered/Not Resolved]
  - Asthenia [Not Recovered/Not Resolved]
  - Anxiety [Unknown]
  - Musculoskeletal discomfort [Unknown]
  - Personality change [Not Recovered/Not Resolved]
  - Agitation [Not Recovered/Not Resolved]
  - Altered visual depth perception [Not Recovered/Not Resolved]

NARRATIVE: CASE EVENT DATE: 2016
